FAERS Safety Report 5977609 (Version 3)
Quarter: 2013Q2

REPORT INFORMATION
  Report Type: Spontaneous
  Country: FR (occurrence: None)
  Receive Date: 20060125
  Receipt Date: 20130610
  Transmission Date: 20140414
  Serious: Yes (Hospitalization)
  Sender: FDA-Public Use
  Company Number: 221395

PATIENT
  Age: 88 Year
  Sex: Male
  Weight: 75 kg

DRUGS (6)
  1. INNOHEP [Suspect]
     Indication: PRODUCT USED FOR UNKNOWN INDICATION
     Dosage: 480 MG, INTRAVENOUS
     Route: 058
     Dates: start: 20130216, end: 20130311
  2. PREVISCAN [Suspect]
     Indication: ATRIAL FIBRILLATION
     Route: 048
     Dates: start: 20130216, end: 20130311
  3. COVERSYL (PERINDOPRIL) [Concomitant]
  4. FUROSEMIDE (FUROSEMIDE) [Concomitant]
  5. HEMIGOXINE (DIGOXINE) [Concomitant]
  6. ALLOPURINOL [Concomitant]

REACTIONS (2)
  - MYOCLONUS [None]
  - FEELING COLD [None]
